FAERS Safety Report 21536170 (Version 1)
Quarter: 2022Q4

REPORT INFORMATION
  Report Type: Spontaneous
  Country: PL (occurrence: PL)
  Receive Date: 20221101
  Receipt Date: 20221101
  Transmission Date: 20230113
  Serious: Yes (Other)
  Sender: FDA-Public Use
  Company Number: PL-ALLERGAN-2236040US

PATIENT

DRUGS (1)
  1. DALBAVANCIN HYDROCHLORIDE [Suspect]
     Active Substance: DALBAVANCIN HYDROCHLORIDE
     Indication: Product used for unknown indication

REACTIONS (2)
  - Shock [Unknown]
  - Incorrect drug administration rate [Unknown]
